FAERS Safety Report 5102472-6 (Version None)
Quarter: 2006Q3

REPORT INFORMATION
  Report Type: 
  Country: None (occurrence: None)
  Receive Date: 20060912
  Receipt Date: 20060612
  Transmission Date: 20061208
  Serious: Yes (Disabling)
  Sender: FDA-Public Use
  Company Number: GB-BRISTOL-MYERS SQUIBB COMPANY-13410071

PATIENT
  Age: 13 Year
  Sex: Male
  Weight: 37 kg

DRUGS (16)
  1. AMIKIN [Suspect]
     Route: 042
     Dates: start: 20050301, end: 20060501
  2. AMIKACIN SULFATE [Suspect]
     Route: 055
     Dates: start: 20050301, end: 20060801
  3. RIFAMPICIN [Concomitant]
     Dates: start: 20050101
  4. ETHAMBUTOL HYDROCHLORIDE [Concomitant]
     Dates: start: 20050101
  5. CLARITHROMYCIN [Concomitant]
     Dates: start: 20050101
  6. VITAMIN E [Concomitant]
     Indication: CYSTIC FIBROSIS
     Route: 048
  7. MENADIOL [Concomitant]
     Indication: CYSTIC FIBROSIS
     Route: 048
  8. ALBUTEROL SPIROS [Concomitant]
     Indication: CYSTIC FIBROSIS
     Route: 055
  9. SERETIDE [Concomitant]
     Indication: CYSTIC FIBROSIS
     Route: 055
  10. PULMOZYME [Concomitant]
     Indication: CYSTIC FIBROSIS
     Route: 055
  11. URSODEOXYCHOLIC ACID [Concomitant]
     Indication: CYSTIC FIBROSIS
     Route: 048
  12. OMEPRAZOLE [Concomitant]
     Route: 048
  13. PREDNISOLONE [Concomitant]
     Indication: CHEST PAIN
     Route: 048
  14. ERGOCALCIFEROL [Concomitant]
     Route: 048
     Dates: start: 20060301
  15. CEFTAZIDIME [Concomitant]
     Route: 042
     Dates: start: 20060301, end: 20060601
  16. CASPOFUNGIN ACETATE [Concomitant]
     Route: 042
     Dates: start: 20060301, end: 20060601

REACTIONS (1)
  - HEARING IMPAIRED [None]
